FAERS Safety Report 8974214 (Version 1)
Quarter: 2012Q4

REPORT INFORMATION
  Report Type: Spontaneous
  Country: US (occurrence: None)
  Receive Date: 20121217
  Receipt Date: 20121217
  Transmission Date: 20130627
  Serious: No
  Sender: FDA-Public Use
  Company Number: None

PATIENT
  Age: 80 Year
  Sex: Male
  Weight: 76.2 kg

DRUGS (1)
  1. LISINOPRIL - WATSON COMPANY N.J. [Suspect]
     Indication: BLOOD PRESSURE HIGH

REACTIONS (6)
  - Urticaria [None]
  - Swelling face [None]
  - Vomiting [None]
  - Throat tightness [None]
  - Lip disorder [None]
  - Eye disorder [None]
